APPROVED DRUG PRODUCT: AZELASTINE HYDROCHLORIDE
Active Ingredient: AZELASTINE HYDROCHLORIDE
Strength: 0.2055MG/SPRAY
Dosage Form/Route: SPRAY, METERED;NASAL
Application: A216576 | Product #001
Applicant: AMNEAL PHARMACEUTICALS LLC
Approved: Jun 5, 2024 | RLD: No | RS: No | Type: OTC